FAERS Safety Report 7874568-7 (Version None)
Quarter: 2011Q4

REPORT INFORMATION
  Report Type: 
  Country: None (occurrence: None)
  Receive Date: 20111031
  Receipt Date: 20111031
  Transmission Date: 20120403
  Serious: Yes (Hospitalization)
  Sender: FDA-Public Use
  Company Number: AU-PFIZER INC-2006005614

PATIENT
  Age: 40 Year
  Sex: Female
  Weight: 42 kg

DRUGS (3)
  1. SUNITINIB MALATE [Suspect]
     Indication: GASTROINTESTINAL STROMAL TUMOUR
     Dosage: 50 MG (UNIT DOSE 25 MG, TDD 50 MG), 1X/DAY
     Route: 048
     Dates: start: 20051007
  2. ACETAMINOPHEN [Concomitant]
     Route: 048
  3. CODEINE PHOSPHATE [Concomitant]
     Route: 048

REACTIONS (4)
  - NAUSEA [None]
  - BODY TEMPERATURE INCREASED [None]
  - VOMITING [None]
  - JAUNDICE [None]
